FAERS Safety Report 8197099-6 (Version None)
Quarter: 2012Q1

REPORT INFORMATION
  Report Type: 
  Country: None (occurrence: None)
  Receive Date: 20120309
  Receipt Date: 20120301
  Transmission Date: 20120608
  Serious: Yes (Hospitalization)
  Sender: FDA-Public Use
  Company Number: CN-ASTELLAS-2012JP001808

PATIENT
  Age: 14 Year
  Sex: Female

DRUGS (5)
  1. TACROLIMUS [Suspect]
     Indication: NEPHROTIC SYNDROME
     Dosage: 2 MG, UNKNOWN/D
     Route: 048
     Dates: start: 20111127, end: 20120229
  2. HORMONAL [Concomitant]
     Dosage: UNK
     Route: 065
     Dates: start: 20111127
  3. HORMONAL [Concomitant]
     Dosage: UNK
     Route: 065
     Dates: start: 20110309
  4. HORMONAL [Concomitant]
     Dosage: UNK
     Route: 065
     Dates: start: 20111124
  5. TACROLIMUS [Suspect]
     Dosage: 4 MG, UNKNOWN/D
     Route: 048
     Dates: start: 20111124

REACTIONS (2)
  - HYPERGLYCAEMIA [None]
  - DIABETIC KETOACIDOSIS [None]
